FAERS Safety Report 7716918-8 (Version None)
Quarter: 2011Q3

REPORT INFORMATION
  Report Type: 
  Country: None (occurrence: None)
  Receive Date: 20110829
  Receipt Date: 20110818
  Transmission Date: 20111222
  Serious: Yes (Hospitalization, Other)
  Sender: FDA-Public Use
  Company Number: US-ASTRAZENECA-2011SE27308

PATIENT
  Age: 75 Year
  Sex: Female
  Weight: 63.5 kg

DRUGS (9)
  1. SEROQUEL [Suspect]
     Route: 048
  2. METOPROLOL TARTRATE [Concomitant]
     Route: 048
  3. ASPIRIN [Concomitant]
     Route: 048
  4. ZOCOR [Concomitant]
     Indication: CARDIAC DISORDER
     Dosage: QD
     Route: 048
  5. SEROQUEL [Suspect]
     Indication: BIPOLAR DISORDER
     Route: 048
  6. HYDROCHLOROTHIAZIDE [Concomitant]
     Indication: CARDIAC DISORDER
     Route: 048
  7. LISINOPRIL [Concomitant]
     Indication: HYPERTENSION
     Route: 048
  8. HYDROCHLOROTHIAZIDE [Concomitant]
     Indication: HYPERTENSION
     Route: 048
  9. SEROQUEL [Suspect]
     Dosage: 200 MG MORNING, 400 MG AT NIGHT
     Route: 048

REACTIONS (5)
  - DIZZINESS [None]
  - LYMPHOMA [None]
  - BREAST CANCER [None]
  - SEDATION [None]
  - OPERATIVE HAEMORRHAGE [None]
